FAERS Safety Report 5527487-5 (Version None)
Quarter: 2007Q4

REPORT INFORMATION
  Report Type: 
  Country: None (occurrence: None)
  Receive Date: 20071128
  Receipt Date: 20071122
  Transmission Date: 20080405
  Serious: Yes (Disabling, Other)
  Sender: FDA-Public Use
  Company Number: PHRM2007FR02647

PATIENT
  Age: 67 Year
  Sex: Male

DRUGS (9)
  1. ZOMETA [Suspect]
     Indication: METASTASES TO BONE
     Dosage: 4 MG, TIW
     Route: 042
     Dates: start: 20040602, end: 20040816
  2. ZOMETA [Suspect]
     Route: 042
     Dates: start: 20050127, end: 20050428
  3. ZOMETA [Suspect]
     Dates: start: 20050503, end: 20060315
  4. CLASTOBAN [Suspect]
     Indication: METASTASES TO BONE
     Dosage: 400 MG, BID
     Route: 048
     Dates: start: 20040816, end: 20050127
  5. CLASTOBAN [Suspect]
     Route: 048
     Dates: start: 20050428, end: 20050503
  6. ERLOTINIB [Concomitant]
     Dates: start: 20050909, end: 20060130
  7. ALIMTA [Suspect]
     Dosage: 17 COURSES
     Dates: start: 20060209, end: 20070131
  8. TAXOTERE [Suspect]
     Indication: METASTASES TO BONE
     Dosage: 6 COURSES
     Dates: start: 20050103, end: 20050419
  9. SKENAN [Concomitant]
     Dosage: UNK, PRN

REACTIONS (10)
  - DENTAL CARE [None]
  - DISEASE PROGRESSION [None]
  - IMPAIRED HEALING [None]
  - METASTASES TO THE MEDIASTINUM [None]
  - METASTASES TO THORAX [None]
  - OBSTRUCTION [None]
  - OSTEONECROSIS [None]
  - PURULENT DISCHARGE [None]
  - SCINTIGRAPHY [None]
  - TOOTH EXTRACTION [None]
